FAERS Safety Report 5279267-6 (Version None)
Quarter: 2007Q1

REPORT INFORMATION
  Report Type: 
  Country: None (occurrence: None)
  Receive Date: 20070328
  Receipt Date: 20060707
  Transmission Date: 20070707
  Serious: No
  Sender: FDA-Public Use
  Company Number: US-AMGEN-KDL185421

PATIENT
  Sex: Female

DRUGS (6)
  1. NEULASTA [Suspect]
     Indication: CHEMOTHERAPY
     Dates: start: 20060619
  2. LISINOPRIL [Concomitant]
  3. PRILOSEC [Concomitant]
  4. COUMADIN [Concomitant]
  5. CELEXA [Concomitant]
  6. DOXORUBICIN HYDROCHLORIDE [Concomitant]

REACTIONS (1)
  - THERAPEUTIC RESPONSE DECREASED [None]
